FAERS Safety Report 4972928-5 (Version None)
Quarter: 2006Q2

REPORT INFORMATION
  Report Type: 
  Country: None (occurrence: None)
  Receive Date: 20060410
  Receipt Date: 20060320
  Transmission Date: 20061013
  Serious: Yes (Other)
  Sender: FDA-Public Use
  Company Number: US200603005372

PATIENT
  Sex: Male

DRUGS (4)
  1. HUMULIN 70/30 [Suspect]
     Indication: DIABETES MELLITUS INSULIN-DEPENDENT
     Dosage: 45 U, EACH MORNING; SEE IMAGE
  2. HUMALOG PEN [Suspect]
     Indication: DIABETES MELLITUS INSULIN-DEPENDENT
     Dosage: AS NEEDED
     Dates: start: 20020101
  3. INSULIN [Suspect]
     Indication: DIABETES MELLITUS INSULIN-DEPENDENT
  4. HUMALOG PEN (HUMALOG PEN) PEN, DISPOSABLE [Concomitant]

REACTIONS (11)
  - BLINDNESS [None]
  - BLOOD GLUCOSE DECREASED [None]
  - CATARACT [None]
  - ERECTILE DYSFUNCTION [None]
  - EYE HAEMORRHAGE [None]
  - LYMPH NODE CANCER METASTATIC [None]
  - OEDEMA PERIPHERAL [None]
  - PHARMACEUTICAL PRODUCT COMPLAINT [None]
  - TONSIL CANCER [None]
  - VISUAL DISTURBANCE [None]
  - WEIGHT DECREASED [None]
